FAERS Safety Report 4804748-6 (Version None)
Quarter: 2005Q4

REPORT INFORMATION
  Report Type: 
  Country: None (occurrence: None)
  Receive Date: 20051017
  Receipt Date: 20051006
  Transmission Date: 20060501
  Serious: Yes (Hospitalization)
  Sender: FDA-Public Use
  Company Number: CHWYE984716SEP05

PATIENT
  Age: 35 Year
  Sex: Male

DRUGS (12)
  1. RAPAMUNE [Suspect]
     Dosage: SEE IMAGE
     Route: 048
     Dates: start: 20050524, end: 20050530
  2. RAPAMUNE [Suspect]
     Dosage: SEE IMAGE
     Route: 048
     Dates: start: 20050601, end: 20050616
  3. RAPAMUNE [Suspect]
     Dosage: SEE IMAGE
     Route: 048
     Dates: start: 20050617
  4. FOLIC ACID [Concomitant]
  5. PANTOZOL (PANTOPRAZOLE) [Concomitant]
  6. BACTRIM DS [Concomitant]
  7. DIFLUCAN [Concomitant]
  8. MAGNESIOCARD (MAGNESIUM ASPARTATE HYDROCHLORIDE) [Concomitant]
  9. KCL TAB [Concomitant]
  10. VALTREX [Concomitant]
  11. PREDNISONE [Concomitant]
  12. URSO FALK [Concomitant]

REACTIONS (12)
  - ALANINE AMINOTRANSFERASE INCREASED [None]
  - ASPARTATE AMINOTRANSFERASE INCREASED [None]
  - BLOOD ALKALINE PHOSPHATASE INCREASED [None]
  - CONDITION AGGRAVATED [None]
  - GAMMA-GLUTAMYLTRANSFERASE INCREASED [None]
  - GRAFT VERSUS HOST DISEASE [None]
  - HEPATIC TRAUMA [None]
  - HEPATOCELLULAR DAMAGE [None]
  - HYPERTRIGLYCERIDAEMIA [None]
  - HYPOKALAEMIA [None]
  - HYPOPHOSPHATAEMIA [None]
  - THROMBOCYTOPENIA [None]
